FAERS Safety Report 8540484 (Version 3)
Quarter: 2012Q4

REPORT INFORMATION
  Report Type: 
  Country: US (occurrence: US)
  Receive Date: 20120502
  Receipt Date: 20120904
  Transmission Date: 20130627
  Serious: Yes (Hospitalization)
  Sender: FDA-Public Use
  Company Number: US-BAYER-2012-042017

PATIENT
  Age: 30 Year
  Sex: Female
  Weight: 61.22 kg

DRUGS (3)
  1. YASMIN [Suspect]
     Dosage: UNK
     Dates: start: 20080405, end: 20080919
  2. OCELLA [Suspect]
     Dosage: UNK
     Dates: start: 20080920, end: 20090901
  3. LEVOXYL [Concomitant]
     Indication: HYPOTHYROIDISM
     Dosage: UNK
     Dates: start: 2005

REACTIONS (3)
  - Pulmonary embolism [None]
  - Pain [None]
  - Injury [None]
